FAERS Safety Report 19547952 (Version 1)
Quarter: 2021Q3

REPORT INFORMATION
  Report Type: Spontaneous
  Country: US (occurrence: US)
  Receive Date: 20210714
  Receipt Date: 20210714
  Transmission Date: 20211014
  Serious: No
  Sender: FDA-Public Use
  Company Number: None

PATIENT
  Age: 80 Year
  Weight: 66.2 kg

DRUGS (22)
  1. MECLIZINE HCL [Concomitant]
     Active Substance: MECLIZINE HYDROCHLORIDE
  2. OYSTER SHELL CALCIUM + D [Concomitant]
  3. CYCLOPHOSPHAMIDE. [Suspect]
     Active Substance: CYCLOPHOSPHAMIDE
     Indication: PLASMA CELL MYELOMA
     Dosage: ?          OTHER FREQUENCY:ONCE WEEKLY;?
     Route: 048
     Dates: start: 20201219
  4. AUGMENTIN [Concomitant]
     Active Substance: AMOXICILLIN\CLAVULANATE POTASSIUM
  5. CELEBREX [Concomitant]
     Active Substance: CELECOXIB
  6. COGNIUM [Concomitant]
  7. FISH OIL CONCENTRATE [Concomitant]
     Active Substance: FISH OIL
  8. GABAPENTIN. [Concomitant]
     Active Substance: GABAPENTIN
  9. MYRBETRIQ [Concomitant]
     Active Substance: MIRABEGRON
  10. FUROSEMIDE. [Concomitant]
     Active Substance: FUROSEMIDE
  11. LORATADINE. [Concomitant]
     Active Substance: LORATADINE
  12. PAROXETINE HCL [Concomitant]
     Active Substance: PAROXETINE HYDROCHLORIDE
  13. ATIVAN [Concomitant]
     Active Substance: LORAZEPAM
  14. LEVOTHYROXINE SODIUM. [Concomitant]
     Active Substance: LEVOTHYROXINE SODIUM
  15. DITROPAN XL [Concomitant]
     Active Substance: OXYBUTYNIN CHLORIDE
  16. LOMOTIL [Concomitant]
     Active Substance: ATROPINE SULFATE\DIPHENOXYLATE HYDROCHLORIDE
  17. OMEPRAZOLE. [Concomitant]
     Active Substance: OMEPRAZOLE
  18. DEXAMETHASONE. [Concomitant]
     Active Substance: DEXAMETHASONE
  19. IMODIUM A?D [Concomitant]
     Active Substance: LOPERAMIDE HYDROCHLORIDE
  20. LORATADINE. [Concomitant]
     Active Substance: LORATADINE
  21. ACYCLOVIR. [Concomitant]
     Active Substance: ACYCLOVIR
  22. ROPINIROLE HCL [Concomitant]
     Active Substance: ROPINIROLE HYDROCHLORIDE

REACTIONS (2)
  - White blood cell count decreased [None]
  - Spinal fracture [None]

NARRATIVE: CASE EVENT DATE: 20210714
